FAERS Safety Report 7752944-0 (Version None)
Quarter: 2011Q3

REPORT INFORMATION
  Report Type: 
  Country: None (occurrence: None)
  Receive Date: 20110915
  Receipt Date: 20110912
  Transmission Date: 20111222
  Serious: Yes (Other)
  Sender: FDA-Public Use
  Company Number: JP-PFIZER INC-2011200924

PATIENT
  Age: 23 Year
  Sex: Female

DRUGS (2)
  1. METFORMIN HCL [Concomitant]
     Indication: LUTEAL PHASE DEFICIENCY
     Dosage: UNK
  2. CABERGOLINE [Suspect]
     Indication: LUTEAL PHASE DEFICIENCY
     Dosage: UNK

REACTIONS (1)
  - ABORTION [None]
